FAERS Safety Report 18727703 (Version 2)
Quarter: 2021Q1

REPORT INFORMATION
  Report Type: Spontaneous
  Country: US (occurrence: US)
  Receive Date: 20210112
  Receipt Date: 20210201
  Transmission Date: 20210419
  Serious: No
  Sender: FDA-Public Use
  Company Number: US-ASTRAZENECA-2020SF69942

PATIENT
  Age: 28898 Day
  Sex: Male
  Weight: 79.4 kg

DRUGS (1)
  1. BEVESPI AEROSPHERE [Suspect]
     Active Substance: FORMOTEROL FUMARATE\GLYCOPYRROLATE
     Indication: UNEVALUABLE EVENT
     Dosage: 9MCG/4.8 MCG ,2 PUFFS,TWO TIMES A DAY , 12 HOURS APART
     Route: 055
     Dates: start: 20201210

REACTIONS (5)
  - Product use issue [Unknown]
  - Therapeutic response shortened [Unknown]
  - Drug ineffective [Unknown]
  - Device malfunction [Unknown]
  - Chest discomfort [Unknown]

NARRATIVE: CASE EVENT DATE: 20201215
